FAERS Safety Report 4599072-3 (Version None)
Quarter: 2005Q1

REPORT INFORMATION
  Report Type: 
  Country: None (occurrence: None)
  Receive Date: 20050304
  Receipt Date: 20050224
  Transmission Date: 20050727
  Serious: Yes (Hospitalization)
  Sender: FDA-Public Use
  Company Number: US-MERCK-0503USA00135

PATIENT
  Age: 48 Year
  Sex: Female

DRUGS (4)
  1. VIOXX [Suspect]
     Route: 048
     Dates: start: 20000224, end: 20040930
  2. PROCARDIA [Concomitant]
     Route: 065
     Dates: start: 19950224
  3. ZOLOFT [Concomitant]
     Route: 065
     Dates: start: 20040224
  4. DITROPAN [Concomitant]
     Route: 065
     Dates: start: 20040224, end: 20040930

REACTIONS (1)
  - CARDIAC DISORDER [None]
